FAERS Safety Report 13619986 (Version 4)
Quarter: 2017Q2

REPORT INFORMATION
  Report Type: Report from Study
  Country: MX (occurrence: MX)
  Receive Date: 20170607
  Receipt Date: 20170620
  Transmission Date: 20170830
  Serious: Yes (Death, Hospitalization, Disabling)
  Sender: FDA-Public Use
  Company Number: MX-ROCHE-1943419

PATIENT
  Age: 38 Year
  Sex: Female

DRUGS (2)
  1. NAB-PACLITAXEL [Suspect]
     Active Substance: PACLITAXEL
     Indication: BREAST CANCER METASTATIC
     Dosage: DAY 1, 8 AND 15 OF EVERY 21 DAY CYCLE (PER PROTOCOL)?THE MOST RECENT DOSE OF PACLITAXEL ALBUMIN WAS
     Route: 042
     Dates: start: 20170521
  2. ATEZOLIZUMAB [Suspect]
     Active Substance: ATEZOLIZUMAB
     Indication: BREAST CANCER METASTATIC
     Dosage: THE MOST RECENT DOSE OF ATEZOLIZUMAB (LOT NUMBER: QQS10692) WAS ADMINISTERED ON 21/MAY/2017 AT 8:40.
     Route: 042
     Dates: start: 20170521

REACTIONS (1)
  - Febrile neutropenia [Fatal]

NARRATIVE: CASE EVENT DATE: 20170530
